FAERS Safety Report 17493012 (Version 2)
Quarter: 2020Q1

REPORT INFORMATION
  Report Type: Report from Study
  Country: ES (occurrence: ES)
  Receive Date: 20200304
  Receipt Date: 20200316
  Transmission Date: 20200409
  Serious: Yes (Hospitalization)
  Sender: FDA-Public Use
  Company Number: ES-AMGEN-ESPCT2020034805

PATIENT
  Age: 64 Year
  Sex: Male
  Weight: 65.5 kg

DRUGS (14)
  1. BEVACIZUMAB. [Suspect]
     Active Substance: BEVACIZUMAB
     Indication: COLORECTAL CANCER METASTATIC
     Dosage: 327.50 MILLIGRAM, Q2WK
     Route: 042
     Dates: start: 20200121, end: 20200204
  2. SEGURIL [Concomitant]
     Active Substance: FUROSEMIDE
     Indication: LARGE INTESTINE PERFORATION
     Dosage: 20 MILLIGRAM
     Route: 042
     Dates: start: 20200220, end: 20200226
  3. CAPOTEN [Concomitant]
     Active Substance: CAPTOPRIL
     Indication: LARGE INTESTINE PERFORATION
     Dosage: UNK
     Dates: start: 20200220
  4. OXALIPLATIN. [Suspect]
     Active Substance: OXALIPLATIN
     Indication: COLORECTAL CANCER METASTATIC
     Dosage: 144.50 MILLIGRAM, Q2WK
     Route: 042
     Dates: start: 20200121, end: 20200204
  5. ATORVASTATIN [Concomitant]
     Active Substance: ATORVASTATIN
     Indication: DYSLIPIDAEMIA
     Dosage: 20 MILLIGRAM, QD
     Route: 048
  6. METFORMIN [Concomitant]
     Active Substance: METFORMIN HYDROCHLORIDE
     Indication: DIABETES MELLITUS
     Dosage: 850 MILLIGRAM, QD
     Route: 048
  7. SEGURIL [Concomitant]
     Active Substance: FUROSEMIDE
     Dosage: 20 MILLIGRAM
     Route: 048
     Dates: start: 20200226
  8. OLMESARTAN [Concomitant]
     Active Substance: OLMESARTAN
     Indication: HYPERTENSION
     Dosage: 20 MILLIGRAM, QD
     Route: 048
  9. FOLINIC ACID [Suspect]
     Active Substance: LEUCOVORIN
     Indication: COLORECTAL CANCER METASTATIC
     Dosage: 680 MILLIGRAM, Q2WK
     Route: 042
     Dates: start: 20200121, end: 20200204
  10. ENALAPRIL [Concomitant]
     Active Substance: ENALAPRIL
     Indication: HYPERTENSION
     Dosage: 2.5 MILLIGRAM
     Route: 042
     Dates: start: 20200220, end: 20200226
  11. PANITUMUMAB [Suspect]
     Active Substance: PANITUMUMAB
     Indication: COLORECTAL CANCER METASTATIC
     Dosage: UNK
     Route: 065
  12. 5 FU [Suspect]
     Active Substance: FLUOROURACIL
     Dosage: 680 MILLIGRAM, Q2WK
     Route: 040
     Dates: start: 20200121, end: 20200204
  13. 5 FU [Suspect]
     Active Substance: FLUOROURACIL
     Indication: COLORECTAL CANCER METASTATIC
     Dosage: 4080 MILLIGRAM, Q2WK
     Route: 041
     Dates: start: 20200121, end: 20200204
  14. G-CSF [Concomitant]
     Active Substance: GRANULOCYTE COLONY-STIMULATING FACTOR NOS
     Indication: NEUTROPENIA
     Dosage: 300 MILLIGRAM
     Route: 058
     Dates: start: 20200218

REACTIONS (1)
  - Large intestine perforation [Recovered/Resolved with Sequelae]

NARRATIVE: CASE EVENT DATE: 20200217
